FAERS Safety Report 22221691 (Version 3)
Quarter: 2023Q2

REPORT INFORMATION
  Report Type: Spontaneous
  Country: US (occurrence: US)
  Receive Date: 20230418
  Receipt Date: 20230525
  Transmission Date: 20230721
  Serious: No
  Sender: FDA-Public Use
  Company Number: US-AMGEN-USASP2023063316

PATIENT
  Age: 9 Year
  Sex: Male
  Weight: 18.2 kg

DRUGS (2)
  1. NEULASTA [Suspect]
     Active Substance: PEGFILGRASTIM
     Indication: Product used for unknown indication
     Dosage: 1.5 MILLIGRAM
     Route: 065
     Dates: start: 20230322
  2. NEULASTA [Suspect]
     Active Substance: PEGFILGRASTIM
     Dosage: 1.5 MILLIGRAM
     Route: 065
     Dates: start: 20230322

REACTIONS (1)
  - Intercepted product preparation error [Unknown]

NARRATIVE: CASE EVENT DATE: 20230322
